FAERS Safety Report 22175173 (Version 1)
Quarter: 2023Q2

REPORT INFORMATION
  Report Type: Spontaneous
  Country: US (occurrence: US)
  Receive Date: 20230405
  Receipt Date: 20230405
  Transmission Date: 20230722
  Serious: Yes (Death)
  Sender: FDA-Public Use
  Company Number: US-AVEO ONCOLOGY-2023-AVEO-US000242

PATIENT

DRUGS (11)
  1. FOTIVDA [Suspect]
     Active Substance: TIVOZANIB HYDROCHLORIDE
     Indication: Renal cell carcinoma
     Dosage: 1.34 MG, DAILY FOR 21 DAYS WITH 7 DAYS OFF (28-DAY CYCLE)
     Route: 048
     Dates: start: 20230317, end: 20230325
  2. CLONAZEPAM [Concomitant]
     Active Substance: CLONAZEPAM
  3. ELIQUIS [Concomitant]
     Active Substance: APIXABAN
  4. LAMOTRIGINE [Concomitant]
     Active Substance: LAMOTRIGINE
  5. MELATONIN [Concomitant]
     Active Substance: MELATONIN
  6. METFORMIN [Concomitant]
     Active Substance: METFORMIN HYDROCHLORIDE
  7. ONDANSETRON [Concomitant]
     Active Substance: ONDANSETRON
  8. OPDIVO [Concomitant]
     Active Substance: NIVOLUMAB
  9. QUETIAPINE [Concomitant]
     Active Substance: QUETIAPINE
  10. SIMVASTATIN [Concomitant]
     Active Substance: SIMVASTATIN
  11. TRAZODONE [Concomitant]
     Active Substance: TRAZODONE HYDROCHLORIDE

REACTIONS (1)
  - Death [Fatal]

NARRATIVE: CASE EVENT DATE: 20230325
